FAERS Safety Report 6134198-4 (Version None)
Quarter: 2009Q1

REPORT INFORMATION
  Report Type: 
  Country: None (occurrence: None)
  Receive Date: 20090326
  Receipt Date: 20090325
  Transmission Date: 20090719
  Serious: Yes (Death)
  Sender: FDA-Public Use
  Company Number: NL-MERCK-0903NLD00015

PATIENT
  Age: 67 Year
  Sex: Female

DRUGS (7)
  1. ZOCOR [Suspect]
     Route: 048
  2. PSYLLIUM HUSK [Concomitant]
     Route: 065
  3. CAPTOPRIL [Concomitant]
     Route: 065
  4. CHLORTHALIDONE [Concomitant]
     Route: 065
  5. BECLOMETHASONE DIPROPIONATE [Concomitant]
     Route: 065
  6. ITRACONAZOLE [Concomitant]
     Indication: ONYCHOMYCOSIS
     Route: 065
  7. CIPROFIBRATE [Concomitant]
     Indication: HYPERLIPIDAEMIA
     Route: 065

REACTIONS (1)
  - PANCREATITIS NECROTISING [None]
